FAERS Safety Report 25730726 (Version 1)
Quarter: 2025Q3

REPORT INFORMATION
  Report Type: Spontaneous
  Country: US (occurrence: None)
  Receive Date: 20250827
  Receipt Date: 20250827
  Transmission Date: 20251021
  Serious: Yes (Death, Hospitalization)
  Sender: FDA-CTU
  Company Number: None

PATIENT
  Age: 83 Year
  Sex: Male
  Weight: 73 kg

DRUGS (2)
  1. APIXABAN [Suspect]
     Active Substance: APIXABAN
     Indication: Atrial fibrillation
     Dosage: FREQUENCY : TWICE A DAY;?
     Route: 048
     Dates: start: 20240726, end: 20250618
  2. AMIODARONE [Suspect]
     Active Substance: AMIODARONE

REACTIONS (2)
  - Subdural haemorrhage [None]
  - Fall [None]

NARRATIVE: CASE EVENT DATE: 20250618
